FAERS Safety Report 7337611-X (Version None)
Quarter: 2011Q1

REPORT INFORMATION
  Report Type: 
  Country: None (occurrence: None)
  Receive Date: 20110224
  Receipt Date: 20110210
  Transmission Date: 20110831
  Serious: Yes (Disabling, Other)
  Sender: FDA-Public Use
  Company Number: 027315

PATIENT
  Age: 45 Year
  Sex: Female

DRUGS (2)
  1. VIMPAT [Suspect]
     Indication: EPILEPSY
     Dosage: 200 MG BID, 450 MG (250 MG MORNING AND 200 MG AT NIGHT)
     Dates: start: 20110101
  2. OXCARBAZEPINE [Concomitant]

REACTIONS (3)
  - GRAND MAL CONVULSION [None]
  - ATAXIA [None]
  - ABASIA [None]
